FAERS Safety Report 7075045-6 (Version None)
Quarter: 2010Q4

REPORT INFORMATION
  Report Type: 
  Country: None (occurrence: None)
  Receive Date: 20101029
  Receipt Date: 20100126
  Transmission Date: 20110411
  Serious: No
  Sender: FDA-Public Use
  Company Number: US-WYE-H12904210

PATIENT
  Age: 50 Year
  Sex: Female
  Weight: 59.02 kg

DRUGS (2)
  1. ADVIL PM [Suspect]
     Indication: INSOMNIA
     Dosage: 1 TO 4 CAPLETS NIGHTLY
     Route: 048
     Dates: start: 20091225
  2. ADVIL PM [Suspect]
     Indication: PAIN

REACTIONS (2)
  - DRUG EFFECT DECREASED [None]
  - OVERDOSE [None]
